FAERS Safety Report 7857259-8 (Version None)
Quarter: 2011Q4

REPORT INFORMATION
  Report Type: 
  Country: None (occurrence: None)
  Receive Date: 20111027
  Receipt Date: 20111017
  Transmission Date: 20120403
  Serious: Yes (Hospitalization, Other)
  Sender: FDA-Public Use
  Company Number: US-BIOGENIDEC-2011BI039575

PATIENT
  Sex: Female

DRUGS (3)
  1. AVONEX [Suspect]
     Route: 030
     Dates: start: 20061105, end: 20080809
  2. AVONEX [Suspect]
     Indication: MULTIPLE SCLEROSIS
     Route: 030
     Dates: start: 20081224, end: 20100101
  3. AVONEX [Suspect]
     Route: 030
     Dates: start: 19960801, end: 20021203

REACTIONS (20)
  - FIBULA FRACTURE [None]
  - NEUROPATHY PERIPHERAL [None]
  - SOFT TISSUE INJURY [None]
  - DIAPHRAGM MUSCLE WEAKNESS [None]
  - DYSPHAGIA [None]
  - TRIGEMINAL NERVE DISORDER [None]
  - FATIGUE [None]
  - FALL [None]
  - DRUG INEFFECTIVE [None]
  - PROCEDURAL PAIN [None]
  - NERVOUS SYSTEM DISORDER [None]
  - ROAD TRAFFIC ACCIDENT [None]
  - LARYNGEAL DISORDER [None]
  - OESOPHAGEAL HYPOMOTILITY [None]
  - SKELETAL INJURY [None]
  - CONVULSION [None]
  - MULTIPLE SCLEROSIS [None]
  - BARIUM SWALLOW ABNORMAL [None]
  - HYPOAESTHESIA [None]
  - HYPOXIA [None]
